FAERS Safety Report 13625531 (Version 2)
Quarter: 2017Q2

REPORT INFORMATION
  Report Type: Spontaneous
  Country: FR (occurrence: FR)
  Receive Date: 20170607
  Receipt Date: 20170615
  Transmission Date: 20170830
  Serious: Yes (Hospitalization)
  Sender: FDA-Public Use
  Company Number: FR-PFIZER INC-2017240837

PATIENT
  Age: 33 Year
  Sex: Female

DRUGS (12)
  1. ENDOXAN /00021101/ [Suspect]
     Active Substance: CYCLOPHOSPHAMIDE
     Indication: ACUTE LEUKAEMIA
     Dosage: 1400 MG (750 MG/M2) 1X/DAY ON D1 AND D15
     Route: 041
     Dates: start: 20170421, end: 20170505
  2. METHOTREXATE BIODIM [Suspect]
     Active Substance: METHOTREXATE
     Indication: ACUTE LEUKAEMIA
     Dosage: 15 MG, 1X/DAY
     Route: 037
     Dates: start: 20170426, end: 20170504
  3. MESNA EG [Suspect]
     Active Substance: MESNA
     Indication: PROPHYLAXIS
     Dosage: 1600 MG, 1X/DAY
     Route: 042
     Dates: start: 20170421, end: 20170505
  4. METHYLPREDNISOLONE MYLAN /00049602/ [Suspect]
     Active Substance: METHYLPREDNISOLONE SODIUM SUCCINATE
     Indication: ACUTE LEUKAEMIA
     Dosage: 40 MG, 1X/DAY
     Route: 037
     Dates: start: 20170426, end: 20170504
  5. ARACYTINE [Suspect]
     Active Substance: CYTARABINE
     Indication: ACUTE LEUKAEMIA
     Dosage: 40 MG, 1X/DAY FROM D 6 TO D14
     Route: 037
     Dates: start: 20170426, end: 20170504
  6. KIDROLASE [Suspect]
     Active Substance: ASPARAGINASE
     Indication: ACUTE LEUKAEMIA
     Dosage: 11220 IU,ONCE DAILY ON D8, D10, D12, D20, D24 CYCLIC
     Route: 041
     Dates: start: 20170428, end: 20170514
  7. VINCRISTINE TEVA [Suspect]
     Active Substance: VINCRISTINE
     Indication: ACUTE LEUKAEMIA
     Dosage: 2 MG, 1X/DAY  ON D1, D8, D15, D22
     Route: 042
     Dates: start: 20170421, end: 20170512
  8. NEFOPAM MEDISOL [Suspect]
     Active Substance: NEFOPAM HYDROCHLORIDE
     Indication: ANALGESIC INTERVENTION SUPPORTIVE THERAPY
     Dosage: UNK
     Route: 037
     Dates: start: 20170419, end: 20170511
  9. NEFOPAM MEDISOL [Suspect]
     Active Substance: NEFOPAM HYDROCHLORIDE
     Dosage: UNK
     Route: 037
     Dates: start: 20170515, end: 20170515
  10. CERUBIDINE [Suspect]
     Active Substance: DAUNORUBICIN HYDROCHLORIDE
     Dosage: 92.5 MG (30 MG/M2), 1X/DAY ON  D15, D16
     Route: 042
     Dates: start: 20170505, end: 20170506
  11. CORTANCYL [Suspect]
     Active Substance: PREDNISONE
     Indication: ACUTE LEUKAEMIA
     Dosage: UNK
     Route: 048
     Dates: start: 20170412, end: 20170504
  12. CERUBIDINE [Suspect]
     Active Substance: DAUNORUBICIN HYDROCHLORIDE
     Indication: ACUTE LEUKAEMIA
     Dosage: 50 MG/M2, 1X/DAY ON D1, D2, D3
     Route: 042
     Dates: start: 20170421, end: 20170423

REACTIONS (3)
  - Seizure [Recovered/Resolved]
  - Cerebral venous thrombosis [Not Recovered/Not Resolved]
  - Encephalopathy [Recovering/Resolving]

NARRATIVE: CASE EVENT DATE: 20170515
